FAERS Safety Report 19949524 (Version 5)
Quarter: 2022Q1

REPORT INFORMATION
  Report Type: Report from Study
  Country: DE (occurrence: DE)
  Receive Date: 20211013
  Receipt Date: 20220110
  Transmission Date: 20220423
  Serious: Yes (Life-Threatening, Hospitalization, Other)
  Sender: FDA-Public Use
  Company Number: DE-CELLTRION INC.-2021DE013863

PATIENT

DRUGS (18)
  1. TRUXIMA [Suspect]
     Active Substance: RITUXIMAB-ABBS
     Indication: Marginal zone lymphoma
     Dosage: 823 MG, ON DAY 1 OF THE FIRST CYCLE
     Route: 042
     Dates: start: 20210922, end: 20210922
  2. TRUXIMA [Suspect]
     Active Substance: RITUXIMAB-ABBS
     Dosage: 375 MG/M2, ON DAY 1 OF EACH CYCLE
     Route: 042
     Dates: start: 20210922, end: 20211119
  3. COPANLISIB [Suspect]
     Active Substance: COPANLISIB
     Indication: Marginal zone lymphoma
     Dosage: 60 MG, ON DAYS 1 AND 8 OF THE FIRST CYCLE
     Route: 042
     Dates: start: 20210922, end: 20210929
  4. COPANLISIB [Suspect]
     Active Substance: COPANLISIB
     Dosage: 60 MG, DAY 1, 8 AND 15 OF EACH CYCLE
     Route: 042
     Dates: start: 20210922, end: 20211203
  5. COPANLISIB [Suspect]
     Active Substance: COPANLISIB
     Dosage: UNK, CYCLE 4 DAY 1
     Route: 065
     Dates: start: 20211230
  6. VITAMIN B12 [Concomitant]
     Active Substance: CYANOCOBALAMIN
     Indication: Anaemia
     Dosage: 1000 MICROGRAM ONCE PER MONTH
     Route: 058
     Dates: start: 202108
  7. FOLIC ACID [Concomitant]
     Active Substance: FOLIC ACID
     Indication: Anaemia
     Dosage: 5 MG, ONCE DAILY
     Route: 048
     Dates: start: 202108
  8. FERROUS GLUCONATE [Concomitant]
     Active Substance: FERROUS GLUCONATE
     Indication: Anaemia
     Dosage: ONCE DAILY
     Route: 048
     Dates: start: 202108
  9. PANTOPRAZOLE [Concomitant]
     Active Substance: PANTOPRAZOLE
     Indication: Gastritis
     Dosage: 40 MG, ONCE DAILY
     Route: 048
     Dates: start: 202108
  10. SULFAMETHOXAZOLE\TRIMETHOPRIM [Concomitant]
     Active Substance: SULFAMETHOXAZOLE\TRIMETHOPRIM
     Indication: Prophylaxis
     Dosage: 960 MG THRICE A WEEK
     Route: 048
     Dates: start: 20210922
  11. ACYCLOVIR [Concomitant]
     Active Substance: ACYCLOVIR
     Indication: Prophylaxis
     Dosage: 400 MG, TWICE DAILY
     Route: 048
     Dates: start: 20210921
  12. ALLOPURINOL [Concomitant]
     Active Substance: ALLOPURINOL
     Indication: Prophylaxis
     Dosage: 150 MG, TWICE DAILY
     Route: 048
     Dates: start: 20210923
  13. IMODIUM [Concomitant]
     Active Substance: LOPERAMIDE HYDROCHLORIDE
     Dosage: UNK
     Dates: start: 20210925
  14. OPIUM TINCTURE [Concomitant]
     Active Substance: MORPHINE
     Indication: Diarrhoea
     Dosage: 5 DROP, THRICE DAILY
     Dates: start: 20211001
  15. ACETAMINOPHEN\CAFFEINE\PROPYPHENAZONE [Concomitant]
     Active Substance: ACETAMINOPHEN\CAFFEINE\PROPYPHENAZONE
     Dosage: UNK
     Dates: start: 20211012
  16. POTASSIUM CHLORIDE [Concomitant]
     Active Substance: POTASSIUM CHLORIDE
     Dosage: UNK
     Dates: start: 20211006, end: 20211010
  17. ENOXAPARIN SODIUM [Concomitant]
     Active Substance: ENOXAPARIN SODIUM
     Dosage: UNK
     Dates: start: 20211004, end: 20211011
  18. JANUVIA [Concomitant]
     Active Substance: SITAGLIPTIN PHOSPHATE
     Indication: Hyperglycaemia
     Dosage: 100 MG, ONCE DAILY
     Route: 048
     Dates: start: 20211020

REACTIONS (6)
  - Neutropenia [Recovered/Resolved]
  - C-reactive protein increased [Unknown]
  - Pyrexia [Recovered/Resolved]
  - Hyperglycaemia [Recovering/Resolving]
  - Weight decreased [Unknown]
  - Off label use [Unknown]

NARRATIVE: CASE EVENT DATE: 20211004
